FAERS Safety Report 4717189-7 (Version None)
Quarter: 2005Q3

REPORT INFORMATION
  Report Type: 
  Country: None (occurrence: None)
  Receive Date: 20050712
  Receipt Date: 20040712
  Transmission Date: 20060218
  Serious: Yes (Disabling)
  Sender: FDA-Public Use
  Company Number: PHEH2004US06624

PATIENT
  Age: 64 Year
  Sex: Male
  Weight: 79.4 kg

DRUGS (1)
  1. GLEEVEC [Suspect]
     Indication: EHLERS-DANLOS SYNDROME
     Dosage: 400 MG, QD, ORAL
     Route: 048
     Dates: start: 20040601

REACTIONS (8)
  - ARTHRALGIA [None]
  - CHEST PAIN [None]
  - DYSPNOEA EXERTIONAL [None]
  - MYALGIA [None]
  - NAUSEA [None]
  - PLEURITIC PAIN [None]
  - PYREXIA [None]
  - TREATMENT NONCOMPLIANCE [None]
